FAERS Safety Report 5196592-8 (Version None)
Quarter: 2006Q4

REPORT INFORMATION
  Report Type: 
  Country: None (occurrence: None)
  Receive Date: 20061229
  Receipt Date: 20061229
  Transmission Date: 20070319
  Serious: No
  Sender: FDA-Public Use
  Company Number: None

PATIENT
  Age: 89 Year
  Sex: Female

DRUGS (5)
  1. PHOSPHOSODA GINGER LEMON [Suspect]
     Indication: COLONOSCOPY
     Dosage: 45 ML; X1;PO
     Route: 048
     Dates: start: 20061128, end: 20061128
  2. PREVACIS [Concomitant]
  3. TOPROL-XL [Concomitant]
  4. DIOVAN [Concomitant]
  5. NORVASC [Concomitant]

REACTIONS (12)
  - ABDOMINAL DISCOMFORT [None]
  - ASTHENIA [None]
  - BLOOD PRESSURE DIASTOLIC DECREASED [None]
  - DIARRHOEA [None]
  - DIZZINESS [None]
  - EYE SWELLING [None]
  - FEELING ABNORMAL [None]
  - NECK PAIN [None]
  - NO REACTION ON PREVIOUS EXPOSURE TO DRUG [None]
  - PALLOR [None]
  - TREMOR [None]
  - VOMITING [None]
